FAERS Safety Report 9557001 (Version 1)
Quarter: 2013Q3

REPORT INFORMATION
  Report Type: Spontaneous
  Country: GB (occurrence: GB)
  Receive Date: 20130926
  Receipt Date: 20130926
  Transmission Date: 20140515
  Serious: Yes (Hospitalization)
  Sender: FDA-Public Use
  Company Number: PHHY2013GB104946

PATIENT
  Age: 57 Year
  Sex: Male

DRUGS (5)
  1. AMOXICILLIN [Suspect]
     Indication: RESPIRATORY TRACT INFECTION
     Dosage: 500 MG, TID
     Route: 048
     Dates: start: 20130805, end: 20130812
  2. ASPIRIN [Concomitant]
  3. CLARITHROMYCIN [Concomitant]
  4. DIGOXIN [Concomitant]
  5. PARACETAMOL [Concomitant]

REACTIONS (3)
  - Ascites [Unknown]
  - Oedema peripheral [Unknown]
  - Liver function test abnormal [Recovered/Resolved]
